FAERS Safety Report 13829348 (Version 1)
Quarter: 2017Q3

REPORT INFORMATION
  Report Type: Spontaneous
  Country: MX (occurrence: MX)
  Receive Date: 20170803
  Receipt Date: 20170803
  Transmission Date: 20171127
  Serious: Yes (Other)
  Sender: FDA-Public Use
  Company Number: MX-PFIZER INC-2017334232

PATIENT
  Age: 79 Year
  Sex: Male

DRUGS (1)
  1. INSPRA [Suspect]
     Active Substance: EPLERENONE
     Dosage: 25 MG, DAILY

REACTIONS (3)
  - Speech disorder [Not Recovered/Not Resolved]
  - Embolism [Not Recovered/Not Resolved]
  - Gait disturbance [Not Recovered/Not Resolved]
